FAERS Safety Report 6146834-7 (Version None)
Quarter: 2009Q2

REPORT INFORMATION
  Report Type: 
  Country: None (occurrence: None)
  Receive Date: 20090406
  Receipt Date: 20090406
  Transmission Date: 20091009
  Serious: Yes (Other)
  Sender: FDA-Public Use
  Company Number: None

PATIENT
  Sex: Female
  Weight: 65.7716 kg

DRUGS (2)
  1. FLUOXETINE [Suspect]
     Indication: ANXIETY
     Dosage: 1 QDAY PO
     Route: 048
     Dates: start: 20081025, end: 20090317
  2. FLUOXETINE [Suspect]
     Indication: MAJOR DEPRESSION
     Dosage: 1 QDAY PO
     Route: 048
     Dates: start: 20081025, end: 20090317

REACTIONS (6)
  - APATHY [None]
  - CONSTIPATION [None]
  - DISEASE RECURRENCE [None]
  - FEELING OF DESPAIR [None]
  - PRODUCT QUALITY ISSUE [None]
  - STRESS [None]
